FAERS Safety Report 5639044-0 (Version None)
Quarter: 2008Q1

REPORT INFORMATION
  Report Type: 
  Country: None (occurrence: None)
  Receive Date: 20080226
  Receipt Date: 20080215
  Transmission Date: 20080703
  Serious: Yes (Hospitalization, Other)
  Sender: FDA-Public Use
  Company Number: US-JNJFOC-20080203657

PATIENT
  Sex: Female
  Weight: 117.94 kg

DRUGS (8)
  1. DURAGESIC-100 [Suspect]
     Indication: BACK PAIN
     Route: 062
  2. DURAGESIC-100 [Suspect]
     Indication: NECK PAIN
     Route: 062
  3. DURAGESIC-100 [Suspect]
     Indication: ARTHRALGIA
     Route: 062
  4. DURAGESIC-100 [Suspect]
     Route: 062
  5. ATACAND [Concomitant]
     Indication: HYPERTENSION
     Route: 048
  6. FLEXERIL [Concomitant]
     Indication: MUSCLE RELAXANT THERAPY
     Route: 048
  7. ULTRAM [Concomitant]
     Indication: BREAKTHROUGH PAIN
     Route: 048
  8. NEXIUM [Concomitant]
     Indication: GASTROOESOPHAGEAL REFLUX DISEASE
     Route: 048

REACTIONS (11)
  - ANAEMIA [None]
  - ARTHRALGIA [None]
  - ASTHMA [None]
  - BLOOD GLUCOSE INCREASED [None]
  - DYSURIA [None]
  - HYPERHIDROSIS [None]
  - INITIAL INSOMNIA [None]
  - MALAISE [None]
  - PANCREATITIS [None]
  - URINARY TRACT INFECTION [None]
  - WRONG TECHNIQUE IN DRUG USAGE PROCESS [None]
